FAERS Safety Report 9470807 (Version 1)
Quarter: 2013Q3

REPORT INFORMATION
  Report Type: Spontaneous
  Country: US (occurrence: None)
  Receive Date: 20130820
  Receipt Date: 20130820
  Transmission Date: 20140515
  Serious: No
  Sender: FDA-Public Use
  Company Number: None

PATIENT
  Sex: Female
  Weight: 79.38 kg

DRUGS (2)
  1. ANASTROZOLE [Suspect]
     Indication: PROPHYLAXIS
     Route: 048
     Dates: start: 20121201, end: 20130806
  2. GENERIC ANTIHISTAMINES [Concomitant]

REACTIONS (5)
  - Dizziness [None]
  - Vertigo [None]
  - Bone pain [None]
  - Arthralgia [None]
  - Joint dislocation [None]
